FAERS Safety Report 7369125-5 (Version None)
Quarter: 2011Q1

REPORT INFORMATION
  Report Type: 
  Country: None (occurrence: None)
  Receive Date: 20110314
  Receipt Date: 20110304
  Transmission Date: 20110831
  Serious: Yes (Hospitalization, Other)
  Sender: FDA-Public Use
  Company Number: WAES 1010USA02535

PATIENT
  Age: 71 Year
  Sex: Male
  Weight: 75.2971 kg

DRUGS (7)
  1. RANITIDINE [Concomitant]
  2. PLACEBO [Suspect]
     Indication: ACUTE CORONARY SYNDROME
     Dosage: PO
     Route: 048
     Dates: start: 20071018
  3. ZOCOR [Suspect]
     Indication: ACUTE CORONARY SYNDROME
     Dosage: PO
     Route: 048
     Dates: start: 20071018
  4. PLAVIX [Concomitant]
  5. ASPIRIN [Concomitant]
  6. PLACEBO [Suspect]
     Indication: ACUTE CORONARY SYNDROME
     Dosage: PO
     Route: 048
     Dates: start: 20071018
  7. OMEPRAZOLE [Concomitant]

REACTIONS (3)
  - HAEMATURIA [None]
  - BLADDER CANCER [None]
  - POST PROCEDURAL COMPLICATION [None]
